FAERS Safety Report 18563392 (Version 1)
Quarter: 2020Q4

REPORT INFORMATION
  Report Type: Other
  Country: CA (occurrence: CA)
  Receive Date: 20201201
  Receipt Date: 20201201
  Transmission Date: 20210114
  Serious: Yes (Other)
  Sender: FDA-Public Use
  Company Number: CA-ROCHE-2723399

PATIENT
  Sex: Female

DRUGS (21)
  1. CALCIUM [Concomitant]
     Active Substance: CALCIUM
  2. BENADRYL [Concomitant]
     Active Substance: DIPHENHYDRAMINE HYDROCHLORIDE
     Route: 048
     Dates: start: 20190910
  3. CANDESARTAN. [Concomitant]
     Active Substance: CANDESARTAN
  4. PLAQUENIL [Concomitant]
     Active Substance: HYDROXYCHLOROQUINE SULFATE
  5. TYLENOL [Concomitant]
     Active Substance: ACETAMINOPHEN
     Route: 048
     Dates: start: 20190910
  6. RITUXAN [Suspect]
     Active Substance: RITUXIMAB
     Indication: SYSTEMIC LUPUS ERYTHEMATOSUS
  7. MIRTAZAPINE. [Concomitant]
     Active Substance: MIRTAZAPINE
  8. SOLU-MEDROL [Concomitant]
     Active Substance: METHYLPREDNISOLONE SODIUM SUCCINATE
     Dates: start: 20190910
  9. VITAMIN D [ERGOCALCIFEROL] [Concomitant]
     Active Substance: ERGOCALCIFEROL
  10. METHOTREXATE. [Concomitant]
     Active Substance: METHOTREXATE
  11. ZOPICLONE [Concomitant]
     Active Substance: ZOPICLONE
  12. RITUXAN [Suspect]
     Active Substance: RITUXIMAB
     Indication: POLYARTHRITIS
     Dosage: DAY 1, DAY 15
     Route: 042
     Dates: start: 20190910
  13. FOLIC ACID. [Concomitant]
     Active Substance: FOLIC ACID
  14. FUROSEMIDE. [Concomitant]
     Active Substance: FUROSEMIDE
  15. GRAVOL [Concomitant]
     Active Substance: DIMENHYDRINATE
     Route: 048
     Dates: start: 20200608, end: 20200608
  16. PANTOLOC [Concomitant]
     Active Substance: PANTOPRAZOLE SODIUM
  17. PREDNISONE. [Concomitant]
     Active Substance: PREDNISONE
  18. QUETIAPINE. [Concomitant]
     Active Substance: QUETIAPINE
  19. XARELTO [Concomitant]
     Active Substance: RIVAROXABAN
  20. FERROUS SULFATE. [Concomitant]
     Active Substance: FERROUS SULFATE
  21. BISOPROLOL [Concomitant]
     Active Substance: BISOPROLOL

REACTIONS (3)
  - Abscess limb [Unknown]
  - Off label use [Unknown]
  - Intentional product use issue [Unknown]
